FAERS Safety Report 9342047 (Version 3)
Quarter: 2013Q3

REPORT INFORMATION
  Report Type: Spontaneous
  Country: JP (occurrence: None)
  Receive Date: 20130606
  Receipt Date: 20130701
  Transmission Date: 20140515
  Serious: Yes (Life-Threatening, Hospitalization)
  Sender: FDA-Public Use
  Company Number: TCI2013A02949

PATIENT
  Age: 33 Year
  Sex: Female

DRUGS (7)
  1. TAKEPRON OD TABLETS 15 (LANSOPRAZOLE) [Suspect]
     Indication: PROPHYLAXIS AGAINST GASTROINTESTINAL ULCER
     Dosage: (15 MG, 1 IN 1 D)
     Route: 048
     Dates: start: 20121023, end: 20130523
  2. BAYASPIRIN (ACETYLSALICYLIC ACID) (ACETYLSALICYLIC ACID) [Suspect]
     Indication: CEREBRAL INFARCTION
     Dosage: (100 MG, 1 IN 1 D)
     Route: 048
     Dates: start: 20120615, end: 20130523
  3. BAYASPIRIN (ACETYLSALICYLIC ACID) (ACETYLSALICYLIC ACID) [Suspect]
     Indication: PROPHYLAXIS
     Dosage: (100 MG, 1 IN 1 D)
     Route: 048
     Dates: start: 20120615, end: 20130523
  4. WYPAX [Suspect]
     Indication: DEPRESSION
     Route: 048
     Dates: start: 201303, end: 20130520
  5. COLONEL [Suspect]
     Indication: ENTEROCOLITIS
     Dosage: (500 MG, 3 IN 1 D)
     Route: 048
     Dates: start: 20121113, end: 20130520
  6. THIATON [Suspect]
     Indication: ENTEROCOLITIS
     Dosage: 30 MG (10 MG, 3 IN 1 D)
     Route: 048
     Dates: start: 20121113, end: 20130520
  7. MIYA-BM (CLOSTRIDIUM BUTYRICUM) [Concomitant]

REACTIONS (5)
  - Hepatitis acute [None]
  - Drug-induced liver injury [None]
  - Malaise [None]
  - Abdominal pain upper [None]
  - Jaundice [None]
